FAERS Safety Report 22220012 (Version 2)
Quarter: 2025Q4

REPORT INFORMATION
  Report Type: Spontaneous
  Country: CA (occurrence: None)
  Receive Date: 20230417
  Receipt Date: 20251226
  Transmission Date: 20260118
  Serious: Yes (Other)
  Sender: ORGANON
  Company Number: CA-009507513-1904CAN006278

PATIENT
  Age: 59 Year
  Sex: Female

DRUGS (58)
  1. ALENDRONATE SODIUM [Suspect]
     Active Substance: ALENDRONATE SODIUM
     Indication: Bone disorder
     Dosage: 70 MILLIGRAM
     Route: 061
  2. ALENDRONATE SODIUM [Suspect]
     Active Substance: ALENDRONATE SODIUM
     Indication: Bone cancer
     Dosage: UNK
     Route: 065
  3. CALCIUM CARBONATE [Suspect]
     Active Substance: CALCIUM CARBONATE
     Indication: Bone disorder
     Dosage: 1 MILLIGRAM, 2 EVERY 1 DAY(S)
     Route: 061
  4. CALCIUM CARBONATE [Suspect]
     Active Substance: CALCIUM CARBONATE
     Dosage: UNK (DOSAGE FORM: NOT SPECIFIED) QD (1 EVERY 1 DAY)
     Route: 061
  5. CALCIUM CARBONATE [Suspect]
     Active Substance: CALCIUM CARBONATE
     Dosage: 2 DOSAGE FORM, QD (1 EVERY 1 DAYS)
     Route: 061
  6. CALCIUM CARBONATE [Suspect]
     Active Substance: CALCIUM CARBONATE
     Dosage: UNK, QD (1 EVERY 1 DAY)
     Route: 061
  7. VITAMIN D3 [Suspect]
     Active Substance: CHOLECALCIFEROL
     Indication: Bone disorder
     Dosage: UNK
     Route: 061
  8. VITAMIN D3 [Suspect]
     Active Substance: CHOLECALCIFEROL
     Dosage: 1 DOSAGE FORM; DOSAGE FORM: NOT SPECIFIED
     Route: 061
  9. CHOLECALCIFEROL [Suspect]
     Active Substance: CHOLECALCIFEROL
     Indication: Bone disorder
     Dosage: 1 MILLIGRAM, DOSAGE FORM: NOT SPECIFIED
     Route: 061
  10. FUROSEMIDE [Suspect]
     Active Substance: FUROSEMIDE
     Indication: Diuretic therapy
     Dosage: 1 DOSAGE FORM (NOT SPECIFIED), 1 EVERY 1 DAY(S)
     Route: 061
  11. FUROSEMIDE [Suspect]
     Active Substance: FUROSEMIDE
     Dosage: UNK, QD (1 EVERY 1 DAY)
     Route: 061
  12. XOLAIR [Suspect]
     Active Substance: OMALIZUMAB
     Indication: Asthma
     Dosage: 300 MILLIGRAM, CYCLICAL DOSAGE FORM: NOT SPECIFIED
  13. XOLAIR [Suspect]
     Active Substance: OMALIZUMAB
     Dosage: 300 MG, BIW
     Dates: start: 20170322, end: 20180110
  14. PANTOPRAZOLE [Suspect]
     Active Substance: PANTOPRAZOLE
     Indication: Gastrointestinal disorder
     Dosage: 1.0 DOSAGE FORMS (NOT SPECIFIED), 2 EVERY 1 DAY(S)
     Route: 061
     Dates: start: 2014
  15. PANTOPRAZOLE [Suspect]
     Active Substance: PANTOPRAZOLE
     Indication: Gastrointestinal disorder
  16. OMALIZUMAB [Suspect]
     Active Substance: OMALIZUMAB
     Indication: Asthma
     Dosage: 300 MILLIGRAM
  17. OMALIZUMAB [Suspect]
     Active Substance: OMALIZUMAB
     Dosage: 300 MILLIGRAM
  18. CHOLECALCIFEROL [Suspect]
     Active Substance: CHOLECALCIFEROL
     Indication: Bone disorder
     Dosage: UNK
     Route: 061
  19. CHOLECALCIFEROL [Suspect]
     Active Substance: CHOLECALCIFEROL
     Dosage: 1 DOSAGE FORM
     Route: 061
  20. CHOLECALCIFEROL [Suspect]
     Active Substance: CHOLECALCIFEROL
     Indication: Bone disorder
     Dosage: UNK (LIQUID ORAL)
     Route: 061
  21. CHOLECALCIFEROL [Suspect]
     Active Substance: CHOLECALCIFEROL
     Indication: Bone disorder
     Dosage: UNK (DOSAGE FORM: NOT SPECIFIED) 1 DOSAGE FORM
     Route: 065
  22. PANTOPRAZOLE SODIUM [Suspect]
     Active Substance: PANTOPRAZOLE SODIUM
     Indication: Gastrointestinal disorder
     Dosage: 2 DOSAGE FORM, QD (1 EVERY 1 DAYS)
     Route: 061
  23. ALVESCO [Concomitant]
     Active Substance: CICLESONIDE
     Indication: Asthma
     Dosage: 4 EVERY 1 DAY(S)
  24. ALVESCO [Concomitant]
     Active Substance: CICLESONIDE
     Dosage: 1 DOSAGE FORM, 1 EVERY 1 DAY (S)
  25. ALVESCO [Concomitant]
     Active Substance: CICLESONIDE
     Dosage: 2 DOSAGE FORMS, 4 EVERY 1 (DAYS)
     Dates: start: 201509
  26. CICLESONIDE [Concomitant]
     Active Substance: CICLESONIDE
     Indication: Product used for unknown indication
     Dosage: DOSAGE FORM: NOT SPECIFIED
     Route: 065
  27. DOMPERIDONE [Concomitant]
     Active Substance: DOMPERIDONE
     Indication: Gastrointestinal disorder
     Dosage: 1 DOSAGE FORMS,3 EVERY 1 (DAYS)
     Route: 061
     Dates: start: 2014
  28. DOMPERIDONE [Concomitant]
     Active Substance: DOMPERIDONE
     Indication: Product used for unknown indication
     Dosage: UNK, QD (1 EVERY 1 DAY)
     Route: 061
  29. DOMPERIDONE [Concomitant]
     Active Substance: DOMPERIDONE
     Dosage: UNK, QD (1 EVERY 1 DAY)
     Route: 061
  30. DOMPERIDONE [Concomitant]
     Active Substance: DOMPERIDONE
     Dosage: UNK
     Route: 065
  31. MOMETASONE FUROATE [Concomitant]
     Active Substance: MOMETASONE FUROATE
     Indication: Product used for unknown indication
     Dosage: DOSAGE FORM: NOT SPECIFIED.
     Route: 065
  32. MOMETASONE FUROATE [Concomitant]
     Active Substance: MOMETASONE FUROATE
     Dosage: UNK (DOSAGE FORM: NOT SPECIFIED)
     Route: 065
  33. PREDNISONE [Concomitant]
     Active Substance: PREDNISONE
     Indication: Asthma
     Dosage: UNK (DOSAGE FORM: NOT SPECIFIED)
     Route: 061
  34. PREDNISONE [Concomitant]
     Active Substance: PREDNISONE
     Indication: Product used for unknown indication
     Dosage: UNK
     Route: 061
  35. ALBUTEROL [Concomitant]
     Active Substance: ALBUTEROL
     Indication: Product used for unknown indication
     Dosage: DOSAGE FORM: NOT SPECIFIED.
     Route: 065
  36. SINGULAIR [Concomitant]
     Active Substance: MONTELUKAST SODIUM
     Indication: Asthma
     Dosage: 1 DOSAGE FORM, 1 EVERY 1 DAY(S); DOSAGE FORM: NOT SPECIFIED.
     Route: 061
  37. SINGULAIR [Concomitant]
     Active Substance: MONTELUKAST SODIUM
     Indication: Product used for unknown indication
     Dosage: UNK
     Route: 065
  38. SINGULAIR [Concomitant]
     Active Substance: MONTELUKAST SODIUM
     Dosage: UNK, QD (1 EVERY 1 DAY)
     Route: 061
  39. SINGULAIR [Concomitant]
     Active Substance: MONTELUKAST SODIUM
     Dosage: UNK
     Route: 065
  40. SPIRIVA [Concomitant]
     Active Substance: TIOTROPIUM BROMIDE MONOHYDRATE
     Indication: Asthma
     Dosage: 1 DOSAGE FORM, 1 EVERY 1 DAY(S)
     Dates: start: 2014
  41. SPIRIVA [Concomitant]
     Active Substance: TIOTROPIUM BROMIDE MONOHYDRATE
     Indication: Product used for unknown indication
     Dosage: UNK, QD (1 EVERY 1 DAY)
  42. VENTOLIN [Concomitant]
     Active Substance: ALBUTEROL SULFATE
     Indication: Product used for unknown indication
     Dosage: 1 DOSAGE FORM, 1 EVERY 1 DAY(S); DOSAGE FORM: NOT SPECIFIED.
  43. VENTOLIN [Concomitant]
     Active Substance: ALBUTEROL SULFATE
     Indication: Asthma
     Dosage: 2 DOSAGEFORMS, 4 EVERY 1 (DAYS)
  44. VENTOLIN [Concomitant]
     Active Substance: ALBUTEROL SULFATE
     Dosage: UNK, QD (1 EVERY 1 DAY)
  45. VENTOLIN [Concomitant]
     Active Substance: ALBUTEROL SULFATE
     Dosage: UNK
     Route: 065
  46. VENTOLIN [Concomitant]
     Active Substance: ALBUTEROL SULFATE
     Dosage: UNK, QD (1 EVERY 1 DAY)
  47. ZENHALE [Concomitant]
     Active Substance: FORMOTEROL FUMARATE\MOMETASONE FUROATE
     Indication: Asthma
     Dosage: 2.0 DOSAGE FORMS, 2 EVERY 1 DAY(S)
     Dates: start: 201509
  48. ZENHALE [Concomitant]
     Active Substance: FORMOTEROL FUMARATE\MOMETASONE FUROATE
     Indication: Product used for unknown indication
     Dosage: UNK, QD (1 EVERY 1 DAY)
  49. ZENHALE [Concomitant]
     Active Substance: FORMOTEROL FUMARATE\MOMETASONE FUROATE
     Dosage: UNK
     Route: 065
  50. ZENHALE [Concomitant]
     Active Substance: FORMOTEROL FUMARATE\MOMETASONE FUROATE
     Dosage: UNK, QD (1 EVERY 1 DAY)
  51. FORMOTEROL FUMARATE [Concomitant]
     Active Substance: FORMOTEROL FUMARATE
     Indication: Product used for unknown indication
     Dosage: DOSAGE FORM: NOT SPECIFIED
     Route: 065
  52. FOSAMAX [Concomitant]
     Active Substance: ALENDRONATE SODIUM
     Indication: Bone disorder
     Dosage: 1 DF, UNK
     Route: 061
  53. FUROSEMIDE [Concomitant]
     Active Substance: FUROSEMIDE
     Indication: Diuretic therapy
     Dosage: 1 DOSAGE FORM, 1 EVERY 1 (DAYS)
     Route: 061
  54. NUCALA [Concomitant]
     Active Substance: MEPOLIZUMAB
     Indication: Diuretic therapy
     Dosage: 1 DOSAGE FORM
  55. CICLESONIDE/FORMOTEROL [Concomitant]
     Indication: Asthma
     Dosage: UNK, QD (1 EVERY 1 DAY)
  56. CICLESONIDE/FORMOTEROL [Concomitant]
     Dosage: UNK, QD (1 EVERY 1 DAY)
  57. SPIRIVA [Concomitant]
     Active Substance: TIOTROPIUM BROMIDE MONOHYDRATE
     Indication: Asthma
     Dosage: UNK (DOSAGE FORM: NOT SPECIFIED)
     Route: 065
  58. SPIRIVA [Concomitant]
     Active Substance: TIOTROPIUM BROMIDE MONOHYDRATE
     Indication: Product used for unknown indication

REACTIONS (11)
  - Drug ineffective [Not Recovered/Not Resolved]
  - Pneumonia [Not Recovered/Not Resolved]
  - Respiratory tract congestion [Not Recovered/Not Resolved]
  - Secretion discharge [Not Recovered/Not Resolved]
  - Sputum discoloured [Not Recovered/Not Resolved]
  - Weight increased [Not Recovered/Not Resolved]
  - Asthma [Not Recovered/Not Resolved]
  - Alopecia [Unknown]
  - Hair texture abnormal [Unknown]
  - Pain in extremity [Unknown]
  - Myalgia [Unknown]

NARRATIVE: CASE EVENT DATE: 20170323
